FAERS Safety Report 21255550 (Version 6)
Quarter: 2023Q1

REPORT INFORMATION
  Report Type: Report from Study
  Country: ES (occurrence: None)
  Receive Date: 20220825
  Receipt Date: 20230110
  Transmission Date: 20230417
  Serious: Yes (Hospitalization)
  Sender: FDA-Public Use
  Company Number: ES-Eisai Medical Research-EC-2022-120544

PATIENT
  Age: 63 Year
  Sex: Male
  Weight: 72 kg

DRUGS (10)
  1. LENVATINIB [Suspect]
     Active Substance: LENVATINIB
     Indication: Renal cell carcinoma
     Route: 048
     Dates: start: 20220713, end: 20220726
  2. QUAVONLIMAB [Suspect]
     Active Substance: QUAVONLIMAB
     Indication: Renal cell carcinoma
     Dosage: QUAVONLIMAB 25MG (+) PEMBROLIZUMAB 400MG
     Route: 041
     Dates: start: 20220713, end: 20220713
  3. PEMBROLIZUMAB [Suspect]
     Active Substance: PEMBROLIZUMAB
     Dosage: QUAVONLIMAB 25MG (+) PEMBROLIZUMAB 400MG
     Route: 041
     Dates: start: 20220831
  4. ENALAPRIL [Concomitant]
     Active Substance: ENALAPRIL
     Dates: start: 202206
  5. TRAMAZOLINE HYDROCHLORIDE [Concomitant]
     Active Substance: TRAMAZOLINE HYDROCHLORIDE
     Dates: start: 202206
  6. ACETAMINOPHEN [Concomitant]
     Active Substance: ACETAMINOPHEN
     Dates: start: 20220719
  7. CAPTOPRIL [Concomitant]
     Active Substance: CAPTOPRIL
     Dates: start: 20220726, end: 20220726
  8. AMLODIPINE [Concomitant]
     Active Substance: AMLODIPINE BESYLATE
     Dates: start: 20220726
  9. OMEPRAZOLE [Concomitant]
     Active Substance: OMEPRAZOLE
     Dates: start: 20220726, end: 20220727
  10. NOLOTIL [Concomitant]
     Dates: start: 20220719

REACTIONS (1)
  - Pulmonary embolism [Recovered/Resolved]

NARRATIVE: CASE EVENT DATE: 20220728
